FAERS Safety Report 18014908 (Version 1)
Quarter: 2020Q3

REPORT INFORMATION
  Report Type: Spontaneous
  Country: US (occurrence: US)
  Receive Date: 20200713
  Receipt Date: 20200713
  Transmission Date: 20201103
  Serious: Yes (Hospitalization)
  Sender: FDA-Public Use
  Company Number: None

PATIENT
  Sex: Male

DRUGS (47)
  1. CEFDINIR. [Concomitant]
     Active Substance: CEFDINIR
  2. MORPHINE [Concomitant]
     Active Substance: MORPHINE
  3. NARCAN [Concomitant]
     Active Substance: NALOXONE HYDROCHLORIDE
  4. UBRELVY [Concomitant]
     Active Substance: UBROGEPANT
  5. BUPROPN HCL [Concomitant]
     Active Substance: BUPROPION HYDROCHLORIDE
  6. LISINOPRIL. [Concomitant]
     Active Substance: LISINOPRIL
  7. TYLENOL [Concomitant]
     Active Substance: ACETAMINOPHEN
  8. CEFPROZIL. [Concomitant]
     Active Substance: CEFPROZIL
  9. DOXYCYCL HYC [Concomitant]
  10. LEVOFLOXACIN. [Concomitant]
     Active Substance: LEVOFLOXACIN
  11. NITROGLYCERIN. [Concomitant]
     Active Substance: NITROGLYCERIN
  12. HYDROXYZ HCL [Concomitant]
     Active Substance: HYDROXYZINE HYDROCHLORIDE
  13. OXYCODONE [Concomitant]
     Active Substance: OXYCODONE
  14. DONEPEZIL. [Concomitant]
     Active Substance: DONEPEZIL
  15. FUROSEMIDE. [Concomitant]
     Active Substance: FUROSEMIDE
  16. MONTELUKAST [Concomitant]
     Active Substance: MONTELUKAST SODIUM
  17. FONDAPARINUX [Concomitant]
     Active Substance: FONDAPARINUX
  18. KETOPROLAC [Concomitant]
  19. MOMETASONE [Concomitant]
     Active Substance: MOMETASONE
  20. NEO/POLY/HC [Concomitant]
     Active Substance: HYDROCORTISONE\NEOMYCIN\POLYMYXIN B SULFATE
  21. PREDNISONE. [Concomitant]
     Active Substance: PREDNISONE
  22. GABAPENTIN. [Concomitant]
     Active Substance: GABAPENTIN
  23. LEFLUNOMIDE. [Concomitant]
     Active Substance: LEFLUNOMIDE
  24. ALENDRONATE [Concomitant]
     Active Substance: ALENDRONATE SODIUM
  25. ESOMEPRA MAG [Concomitant]
  26. ONDANSETRON [Concomitant]
     Active Substance: ONDANSETRON
  27. RESTASIS [Concomitant]
     Active Substance: CYCLOSPORINE
  28. VENLAFAXINE [Concomitant]
     Active Substance: VENLAFAXINE HYDROCHLORIDE
  29. DESLORATADIN [Concomitant]
     Active Substance: DESLORATADINE
  30. WARFARIN [Concomitant]
     Active Substance: WARFARIN
  31. CIPROFLOXACIN. [Concomitant]
     Active Substance: CIPROFLOXACIN
  32. CLINDAMYCIN. [Concomitant]
     Active Substance: CLINDAMYCIN
  33. HYDROCO/APAP [Concomitant]
     Active Substance: ACETAMINOPHEN\HYDROCODONE
  34. MUPIROCIN. [Concomitant]
     Active Substance: MUPIROCIN
  35. VIRTUSSIN [Concomitant]
  36. COLESTIPOL [Concomitant]
     Active Substance: COLESTIPOL
  37. ATORVASTATIN [Concomitant]
     Active Substance: ATORVASTATIN
  38. FEROSUL [Concomitant]
     Active Substance: FERROUS SULFATE
  39. LISINOPRIL. [Concomitant]
     Active Substance: LISINOPRIL
  40. LORAZEPAM. [Concomitant]
     Active Substance: LORAZEPAM
  41. METAXALONE. [Concomitant]
     Active Substance: METAXALONE
  42. PRAMIPEXOLE. [Concomitant]
     Active Substance: PRAMIPEXOLE
  43. XELJANZ [Suspect]
     Active Substance: TOFACITINIB CITRATE
     Indication: PAIN
     Route: 048
     Dates: start: 201906
  44. DOXEPIN HCL [Concomitant]
     Active Substance: DOXEPIN HYDROCHLORIDE
  45. METOPROLOL TARTRATE. [Concomitant]
     Active Substance: METOPROLOL TARTRATE
  46. TRIAMCINOLON [Concomitant]
  47. VANCOMYCIN [Concomitant]
     Active Substance: VANCOMYCIN

REACTIONS (8)
  - Back pain [None]
  - Arthralgia [None]
  - Pain [None]
  - Wheezing [None]
  - Neck pain [None]
  - Multiple allergies [None]
  - Cough [None]
  - Upper-airway cough syndrome [None]
